FAERS Safety Report 6264051-7 (Version None)
Quarter: 2009Q3

REPORT INFORMATION
  Report Type: 
  Country: None (occurrence: None)
  Receive Date: 20090710
  Receipt Date: 20090626
  Transmission Date: 20100115
  Serious: Yes (Hospitalization, Other)
  Sender: FDA-Public Use
  Company Number: PHHY2008JP22876

PATIENT
  Sex: Female
  Weight: 39 kg

DRUGS (1)
  1. LOCHOL [Suspect]
     Indication: HYPERCHOLESTEROLAEMIA
     Dosage: 10 MG/DAY
     Route: 048
     Dates: start: 20061101, end: 20080701

REACTIONS (7)
  - BILIARY CIRRHOSIS PRIMARY [None]
  - BILIARY TRACT DISORDER [None]
  - CHOLELITHIASIS [None]
  - DYSGEUSIA [None]
  - HEPATITIS CHRONIC ACTIVE [None]
  - MALAISE [None]
  - NECROSIS [None]
